FAERS Safety Report 10342525 (Version 1)
Quarter: 2014Q3

REPORT INFORMATION
  Report Type: Spontaneous
  Country: GB (occurrence: GB)
  Receive Date: 20140725
  Receipt Date: 20140725
  Transmission Date: 20150326
  Serious: Yes (Disabling)
  Sender: FDA-Public Use
  Company Number: PHHY2014GB088161

PATIENT
  Age: 77 Year
  Sex: Female
  Weight: 86 kg

DRUGS (6)
  1. LERCANIDIPINE HYDROCHLORIDE [Concomitant]
     Active Substance: LERCANIDIPINE HYDROCHLORIDE
     Dates: start: 20140508, end: 20140605
  2. TILDIEM [Concomitant]
     Active Substance: DILTIAZEM HYDROCHLORIDE
     Dates: start: 20140529, end: 20140626
  3. SALBUTAMOL [Concomitant]
     Active Substance: ALBUTEROL
     Dates: start: 20140508, end: 20140605
  4. INDAPAMIDE. [Suspect]
     Active Substance: INDAPAMIDE
     Dates: start: 20140616
  5. LEVOTHYROXINE [Concomitant]
     Active Substance: LEVOTHYROXINE
     Dates: start: 20140317
  6. LOSARTAN [Concomitant]
     Active Substance: LOSARTAN
     Dates: start: 20140317

REACTIONS (1)
  - Urinary incontinence [Recovering/Resolving]

NARRATIVE: CASE EVENT DATE: 20140707
